FAERS Safety Report 5794972-0 (Version None)
Quarter: 2008Q2

REPORT INFORMATION
  Report Type: 
  Country: None (occurrence: None)
  Receive Date: 20080630
  Receipt Date: 20080618
  Transmission Date: 20081010
  Serious: Yes (Death, Hospitalization)
  Sender: FDA-Public Use
  Company Number: DE-ROCHE-565372

PATIENT
  Sex: Female
  Weight: 79 kg

DRUGS (3)
  1. MARCUMAR [Suspect]
     Indication: DEEP VEIN THROMBOSIS
     Dosage: CO-INDICATION: PULMONARY EMBOLISM
     Route: 048
  2. AVASTIN [Concomitant]
     Indication: METASTATIC RENAL CELL CARCINOMA
     Dosage: TWICE AT AN INTERVAL OF 14 DAYS. ALSO RECEIVED ON 30 APRIL 2008
     Route: 042
     Dates: start: 20080416
  3. ROFERON-A [Concomitant]
     Indication: METASTATIC RENAL CELL CARCINOMA
     Dosage: DOSE: 6 MIU.
     Route: 058
     Dates: start: 20080416

REACTIONS (2)
  - CARDIAC ARREST [None]
  - GASTROINTESTINAL HAEMORRHAGE [None]
